FAERS Safety Report 4896796-5 (Version None)
Quarter: 2005Q4

REPORT INFORMATION
  Report Type: 
  Country: None (occurrence: None)
  Receive Date: 20051223
  Receipt Date: 20050928
  Transmission Date: 20060501
  Serious: Yes (Life-Threatening, Hospitalization, Disabling)
  Sender: FDA-Public Use
  Company Number: 216082

PATIENT
  Age: 68 Year
  Sex: Female
  Weight: 63.9 kg

DRUGS (10)
  1. AVASTIN [Suspect]
     Indication: COLORECTAL CANCER METASTATIC
     Dosage: 5 MG/KG, Q2W, INTRAVENOUS
     Route: 042
     Dates: start: 20050420, end: 20050712
  2. OXALIPLATIN (OXALIPLATIN) [Concomitant]
  3. FLUOROURACIL [Concomitant]
  4. LEUCOVORIN CALCIUM [Concomitant]
  5. ZOMETA [Concomitant]
  6. MAG SULFATE (MAGNESIUM SULFATE) [Concomitant]
  7. KYTRIL (GYRANISETRON HYDROCHLORIDE) [Concomitant]
  8. ALEVE [Concomitant]
  9. DECADRON [Concomitant]
  10. CALCIUM NOS (CALCIUIM NOS) [Concomitant]

REACTIONS (1)
  - HAEMORRHAGE INTRACRANIAL [None]
